FAERS Safety Report 26091553 (Version 2)
Quarter: 2025Q4

REPORT INFORMATION
  Report Type: Spontaneous
  Country: GB (occurrence: GB)
  Receive Date: 20251126
  Receipt Date: 20251217
  Transmission Date: 20260117
  Serious: Yes (Other)
  Sender: SANOFI AVENTIS
  Company Number: GB-SA-2025SA348746

PATIENT
  Age: 31 Year
  Sex: Male

DRUGS (8)
  1. TZIELD [Suspect]
     Active Substance: TEPLIZUMAB-MZWV
     Indication: Diabetes prophylaxis
     Dosage: 143 UG, 1X
     Route: 042
     Dates: start: 20251009, end: 20251009
  2. TZIELD [Suspect]
     Active Substance: TEPLIZUMAB-MZWV
     Dosage: 275 UG, 1X
     Route: 042
     Dates: start: 20251010, end: 20251010
  3. TZIELD [Suspect]
     Active Substance: TEPLIZUMAB-MZWV
     Dosage: 550 UG, 1X
     Route: 042
     Dates: start: 20251011, end: 20251011
  4. TZIELD [Suspect]
     Active Substance: TEPLIZUMAB-MZWV
     Dosage: 1100 UG, 1X
     Route: 042
     Dates: start: 20251012, end: 20251012
  5. TZIELD [Suspect]
     Active Substance: TEPLIZUMAB-MZWV
     Dosage: 2266 UG, QD
     Route: 042
     Dates: start: 20251013, end: 20251022
  6. METOCLOPRAMIDE [Concomitant]
     Active Substance: METOCLOPRAMIDE
     Indication: Premedication
     Dosage: 10 MG, QD
     Route: 048
     Dates: start: 2025
  7. CHLORPHENIRAMINE [Concomitant]
     Active Substance: CHLORPHENIRAMINE
     Indication: Premedication
     Dosage: 10 MG, QID
     Route: 048
     Dates: start: 2025
  8. ACETAMINOPHEN [Concomitant]
     Active Substance: ACETAMINOPHEN
     Indication: Premedication
     Dosage: 1000 MG, QID
     Route: 048
     Dates: start: 2025, end: 2025

REACTIONS (5)
  - Epstein-Barr virus infection reactivation [Not Recovered/Not Resolved]
  - Rash [Not Recovered/Not Resolved]
  - Pyrexia [Not Recovered/Not Resolved]
  - Swelling [Not Recovered/Not Resolved]
  - Swelling face [Not Recovered/Not Resolved]

NARRATIVE: CASE EVENT DATE: 20250101
